FAERS Safety Report 20325054 (Version 1)
Quarter: 2022Q1

REPORT INFORMATION
  Report Type: Spontaneous
  Country: US (occurrence: US)
  Receive Date: 20220111
  Receipt Date: 20220111
  Transmission Date: 20220423
  Serious: Yes (Other)
  Sender: FDA-Public Use
  Company Number: US-LANNETT COMPANY, INC.-US-2022LAN000001

PATIENT

DRUGS (1)
  1. ASPIRIN\BUTALBITAL\CAFFEINE [Suspect]
     Active Substance: ASPIRIN\BUTALBITAL\CAFFEINE
     Indication: Product used for unknown indication
     Dosage: UNK
     Route: 048

REACTIONS (3)
  - Spinal cord compression [Unknown]
  - Muscle atrophy [Unknown]
  - Injury [Unknown]
